FAERS Safety Report 6158992-9 (Version None)
Quarter: 2009Q2

REPORT INFORMATION
  Report Type: 
  Country: None (occurrence: None)
  Receive Date: 20090417
  Receipt Date: 20090409
  Transmission Date: 20091009
  Serious: Yes (Hospitalization)
  Sender: FDA-Public Use
  Company Number: FR-JNJFOC-20090403084

PATIENT
  Sex: Male

DRUGS (1)
  1. EPITOMAX [Suspect]
     Indication: POST-TRAUMATIC EPILEPSY
     Route: 048

REACTIONS (5)
  - ACCIDENTAL OVERDOSE [None]
  - INCORRECT DOSE ADMINISTERED [None]
  - MEDICATION ERROR [None]
  - OXYGEN SATURATION DECREASED [None]
  - SOMNOLENCE [None]
